FAERS Safety Report 5060799-0 (Version None)
Quarter: 2006Q3

REPORT INFORMATION
  Report Type: 
  Country: None (occurrence: None)
  Receive Date: 20060719
  Receipt Date: 20060719
  Transmission Date: 20061208
  Serious: Yes (Hospitalization)
  Sender: FDA-Public Use
  Company Number: None

PATIENT
  Age: 66 Year
  Sex: Male
  Weight: 91.6 kg

DRUGS (1)
  1. LISINOPRIL [Suspect]
     Indication: HYPERTENSION
     Dosage: 40MG QD PO
     Route: 048

REACTIONS (6)
  - ANGIONEUROTIC OEDEMA [None]
  - BLOOD CALCIUM INCREASED [None]
  - DYSPHAGIA [None]
  - DYSPHONIA [None]
  - GOUT [None]
  - PAIN [None]
